FAERS Safety Report 9188727 (Version 2)
Quarter: 2013Q3

REPORT INFORMATION
  Report Type: Report from Study
  Country: DE (occurrence: DE)
  Receive Date: 20130325
  Receipt Date: 20130829
  Transmission Date: 20140515
  Serious: Yes (Hospitalization)
  Sender: FDA-Public Use
  Company Number: DE-US-EMD SERONO, INC.-7200677

PATIENT
  Age: 29 Year
  Sex: Female

DRUGS (1)
  1. REBIF [Suspect]
     Indication: MULTIPLE SCLEROSIS
     Route: 058
     Dates: start: 201204, end: 201306

REACTIONS (2)
  - Paranasal cyst [Unknown]
  - Multiple sclerosis relapse [Unknown]
